FAERS Safety Report 6491071-X (Version None)
Quarter: 2009Q4

REPORT INFORMATION
  Report Type: 
  Country: None (occurrence: None)
  Receive Date: 20091125
  Receipt Date: 20081106
  Transmission Date: 20100525
  Serious: Yes (Other)
  Sender: FDA-Public Use
  Company Number: 2008BH012050

PATIENT
  Age: 71 Year
  Sex: Male
  Weight: 73.9 kg

DRUGS (11)
  1. DIANEAL [Suspect]
     Indication: PERITONEAL DIALYSIS
     Dosage: 10 L;EVERY DAY;IP
     Route: 033
     Dates: start: 20080603
  2. HEPARIN [Concomitant]
  3. SIMVASTATIN [Concomitant]
  4. LEVOTHYROXINE SODIUM [Concomitant]
  5. TYLENOL (CAPLET) [Concomitant]
  6. PRILOSEC [Concomitant]
  7. ZOLPIDEM [Concomitant]
  8. NEPHROCAPS [Concomitant]
  9. GENTAMICIN CREAM [Concomitant]
  10. GABAPENTIN [Concomitant]
  11. FEREX [Concomitant]

REACTIONS (2)
  - PERITONEAL DIALYSIS COMPLICATION [None]
  - PERITONITIS BACTERIAL [None]
